FAERS Safety Report 8976922 (Version 1)
Quarter: 2012Q4

REPORT INFORMATION
  Report Type: 
  Country: GB (occurrence: GB)
  Receive Date: 20121220
  Receipt Date: 20121220
  Transmission Date: 20130627
  Serious: Yes (Hospitalization, Other)
  Sender: FDA-Public Use
  Company Number: GB-TEVA-375489ISR

PATIENT
  Age: 72 Year
  Sex: Male

DRUGS (9)
  1. CLOPIDOGREL [Suspect]
     Indication: ISCHAEMIC HEART DISEASE PROPHYLAXIS
     Route: 048
     Dates: start: 20120626
  2. ASPIRIN [Suspect]
     Indication: ISCHAEMIC HEART DISEASE PROPHYLAXIS
     Route: 048
     Dates: start: 20120626
  3. UNKNOWN MEDICATION [Concomitant]
     Indication: ACUTE MYOCARDIAL INFARCTION
     Dates: start: 20120625, end: 20121003
  4. OMEPRAZOLE [Concomitant]
     Indication: PROPHYLAXIS
  5. PERINDOPRIL [Concomitant]
     Indication: ISCHAEMIC HEART DISEASE PROPHYLAXIS
  6. ATORVASTATIN [Concomitant]
     Indication: ISCHAEMIC HEART DISEASE PROPHYLAXIS
  7. BISOPROLOL [Concomitant]
     Indication: ISCHAEMIC HEART DISEASE PROPHYLAXIS
  8. FERROUS SULPHATE [Concomitant]
     Indication: BLOOD IRON DECREASED
  9. FUROSEMIDE [Concomitant]
     Indication: PULMONARY OEDEMA

REACTIONS (6)
  - Anaemia [Recovered/Resolved]
  - Dizziness [Recovered/Resolved]
  - Dyspnoea [Recovered/Resolved]
  - Chest pain [Recovered/Resolved]
  - Oesophagitis [Unknown]
  - Intestinal polyp [Unknown]
